FAERS Safety Report 6872791-1 (Version None)
Quarter: 2010Q3

REPORT INFORMATION
  Report Type: 
  Country: None (occurrence: None)
  Receive Date: 20100721
  Receipt Date: 20100715
  Transmission Date: 20110219
  Serious: Yes (Hospitalization, Disabling)
  Sender: FDA-Public Use
  Company Number: 2010SP026653

PATIENT
  Age: 23 Year
  Sex: Female
  Weight: 90.7194 kg

DRUGS (1)
  1. NUVARING [Suspect]
     Indication: CONTRACEPTION
     Dates: start: 20020201, end: 20070313

REACTIONS (6)
  - CERVICAL DYSPLASIA [None]
  - FACTOR V DEFICIENCY [None]
  - HAEMORRHOIDS [None]
  - PAPILLOMA VIRAL INFECTION [None]
  - PNEUMONIA [None]
  - PULMONARY EMBOLISM [None]
